FAERS Safety Report 10899084 (Version 1)
Quarter: 2015Q1

REPORT INFORMATION
  Report Type: Spontaneous
  Country: CA (occurrence: CA)
  Receive Date: 20150309
  Receipt Date: 20150309
  Transmission Date: 20150721
  Serious: Yes (Other)
  Sender: FDA-Public Use
  Company Number: CA-BAYER-2015-029625

PATIENT
  Sex: Female
  Weight: 55.78 kg

DRUGS (1)
  1. MIRENA [Suspect]
     Active Substance: LEVONORGESTREL
     Dosage: UNK
     Route: 015

REACTIONS (5)
  - Vaginal infection [Recovered/Resolved]
  - Chest discomfort [Recovered/Resolved]
  - Dyspareunia [Recovered/Resolved]
  - Anxiety [Recovered/Resolved]
  - Vaginal discharge [Recovered/Resolved]
